FAERS Safety Report 12192130 (Version 1)
Quarter: 2016Q1

REPORT INFORMATION
  Report Type: Spontaneous
  Country: FR (occurrence: FR)
  Receive Date: 20160318
  Receipt Date: 20160318
  Transmission Date: 20160526
  Serious: Yes (Hospitalization)
  Sender: FDA-Public Use
  Company Number: FR-SA-2016SA052340

PATIENT
  Age: 31 Year
  Sex: Male

DRUGS (12)
  1. ZOLPIDEM TARTRATE. [Suspect]
     Active Substance: ZOLPIDEM TARTRATE
     Indication: INITIAL INSOMNIA
     Route: 048
     Dates: start: 201506, end: 20151209
  2. VALACICLOVIR [Concomitant]
     Active Substance: VALACYCLOVIR HYDROCHLORIDE
     Indication: PROPHYLAXIS
     Route: 065
     Dates: start: 201506
  3. EUPANTOL [Concomitant]
     Active Substance: PANTOPRAZOLE SODIUM
     Route: 048
     Dates: start: 201506
  4. WELLVONE [Concomitant]
     Active Substance: ATOVAQUONE
     Indication: PROPHYLAXIS
     Dosage: 750 MG/5 ML, ORAL SUSPENSION
     Route: 048
     Dates: start: 201506
  5. NOXAFIL [Concomitant]
     Active Substance: POSACONAZOLE
     Indication: PROPHYLAXIS
     Route: 048
  6. MABTHERA [Suspect]
     Active Substance: RITUXIMAB
     Indication: CYTOPENIA
     Dosage: 4 COURSES IN TOTAL
     Route: 042
     Dates: start: 20150708, end: 20150708
  7. MABTHERA [Suspect]
     Active Substance: RITUXIMAB
     Indication: CYTOPENIA
     Dosage: 4 COURSES IN TOTAL
     Route: 042
     Dates: start: 2014
  8. LEDERFOLINE [Concomitant]
     Active Substance: LEUCOVORIN CALCIUM
     Route: 048
     Dates: start: 201506
  9. MABTHERA [Suspect]
     Active Substance: RITUXIMAB
     Indication: CYTOPENIA
     Dosage: 4 COURSES IN TOTAL
     Route: 042
     Dates: start: 20150624, end: 20150701
  10. MABTHERA [Suspect]
     Active Substance: RITUXIMAB
     Indication: CYTOPENIA
     Route: 042
     Dates: start: 20150715, end: 20150715
  11. ORACILLINE [Concomitant]
     Active Substance: PENICILLIN V
     Indication: PROPHYLAXIS
     Route: 065
     Dates: start: 201506
  12. BISOCE [Concomitant]
     Active Substance: BISOPROLOL
     Route: 048
     Dates: start: 201506

REACTIONS (1)
  - Agranulocytosis [Recovered/Resolved]

NARRATIVE: CASE EVENT DATE: 20151102
